FAERS Safety Report 8854106 (Version 1)
Quarter: 2012Q4

REPORT INFORMATION
  Report Type: 
  Country: FR (occurrence: FR)
  Receive Date: 20121022
  Receipt Date: 20121022
  Transmission Date: 20130627
  Serious: Yes (Other)
  Sender: FDA-Public Use
  Company Number: FR-PERRIGO-12FR008974

PATIENT
  Age: 47 Year
  Sex: Male

DRUGS (1)
  1. IMIQUIMOD [Suspect]
     Indication: BASAL CELL CARCINOMA
     Dosage: 5 days/week for 6 week cycle
     Route: 061

REACTIONS (4)
  - Pulmonary embolism [Recovered/Resolved]
  - Pleural effusion [Recovered/Resolved]
  - Chest pain [Recovered/Resolved]
  - Apnoea [Recovered/Resolved]
